FAERS Safety Report 4744334-X (Version None)
Quarter: 2005Q3

REPORT INFORMATION
  Report Type: 
  Country: None (occurrence: None)
  Receive Date: 20050809
  Receipt Date: 20050727
  Transmission Date: 20060218
  Serious: Yes (Other)
  Sender: FDA-Public Use
  Company Number: 2005-01595

PATIENT
  Age: 57 Year
  Sex: Male
  Weight: 178 kg

DRUGS (2)
  1. VELCADE [Suspect]
     Indication: MULTIPLE MYELOMA
     Dosage: 1.30 MG/M2, INTRAVENOUS; 1.30 MG/M2, INTRAVENOUS
     Route: 042
     Dates: start: 20050408, end: 20050527
  2. VELCADE [Suspect]
     Indication: MULTIPLE MYELOMA
     Dosage: 1.30 MG/M2, INTRAVENOUS; 1.30 MG/M2, INTRAVENOUS
     Route: 042
     Dates: start: 20050529

REACTIONS (2)
  - JESSNER'S LYMPHOCYTIC INFILTRATION [None]
  - NEUTROPENIA [None]
